FAERS Safety Report 6971139-1 (Version None)
Quarter: 2010Q3

REPORT INFORMATION
  Report Type: 
  Country: None (occurrence: None)
  Receive Date: 20100908
  Receipt Date: 20100830
  Transmission Date: 20110219
  Serious: Yes (Life-Threatening)
  Sender: FDA-Public Use
  Company Number: DE-MERCK-1009DEU00003

PATIENT
  Age: 70 Year
  Sex: Male

DRUGS (2)
  1. PRIMAXIN [Suspect]
     Indication: STAPHYLOCOCCAL SEPSIS
     Route: 042
  2. CIPROFLOXACIN [Concomitant]
     Indication: STAPHYLOCOCCAL SEPSIS
     Route: 042

REACTIONS (1)
  - DRUG INEFFECTIVE [None]
